FAERS Safety Report 18044196 (Version 1)
Quarter: 2020Q3

REPORT INFORMATION
  Report Type: Spontaneous
  Country: US (occurrence: US)
  Receive Date: 20200719
  Receipt Date: 20200719
  Transmission Date: 20201103
  Serious: Yes (Disabling)
  Sender: FDA-Public Use
  Company Number: None

PATIENT
  Age: 62 Year
  Sex: Male
  Weight: 83.25 kg

DRUGS (10)
  1. AMBIEN [Concomitant]
     Active Substance: ZOLPIDEM TARTRATE
  2. IC LEVOTHYROXINE [Concomitant]
  3. CITALOPRAM [Concomitant]
     Active Substance: CITALOPRAM HYDROBROMIDE
  4. BRAND TOFRANIL [Concomitant]
  5. VITAMIN MEN^S 50+ EQUATE MULTIVITAMIN [Concomitant]
  6. IC LIOTHYRONINE SOD [Concomitant]
  7. VERAPAMIL [Concomitant]
     Active Substance: VERAPAMIL HYDROCHLORIDE
  8. IC IMIPRAMINE HCL 25 MG TABLET [Suspect]
     Active Substance: IMIPRAMINE HYDROCHLORIDE
     Indication: ANXIETY
     Dosage: ?          QUANTITY:9 TABLET(S);?
     Route: 048
  9. IC IMIPRAMINE HCL 25 MG TABLET [Suspect]
     Active Substance: IMIPRAMINE HYDROCHLORIDE
     Indication: DEPRESSION
     Dosage: ?          QUANTITY:9 TABLET(S);?
     Route: 048
  10. XANAX [Concomitant]
     Active Substance: ALPRAZOLAM

REACTIONS (4)
  - Anxiety [None]
  - Depression [None]
  - Impaired work ability [None]
  - Product substitution issue [None]

NARRATIVE: CASE EVENT DATE: 20200531
